FAERS Safety Report 15486847 (Version 1)
Quarter: 2018Q4

REPORT INFORMATION
  Report Type: Spontaneous
  Country: US (occurrence: US)
  Receive Date: 20181011
  Receipt Date: 20181011
  Transmission Date: 20190205
  Serious: No
  Sender: FDA-Public Use
  Company Number: US-JNJFOC-20180920716

PATIENT
  Age: 23 Year
  Sex: Female
  Weight: 70.31 kg

DRUGS (11)
  1. BENADRYL ALLERGY ULTRATAB [Suspect]
     Active Substance: DIPHENHYDRAMINE HYDROCHLORIDE
     Indication: SKIN EXFOLIATION
     Route: 048
     Dates: start: 20180912, end: 20180912
  2. IBUPROFEN. [Suspect]
     Active Substance: IBUPROFEN
     Indication: HYPERSENSITIVITY
     Route: 065
     Dates: start: 20180912, end: 20180912
  3. IBUPROFEN. [Suspect]
     Active Substance: IBUPROFEN
     Indication: ERYTHEMA
     Route: 065
     Dates: start: 20180912, end: 20180912
  4. IBUPROFEN. [Suspect]
     Active Substance: IBUPROFEN
     Indication: SWELLING FACE
     Route: 065
     Dates: start: 20180912, end: 20180912
  5. IBUPROFEN. [Suspect]
     Active Substance: IBUPROFEN
     Indication: SKIN LESION
     Route: 065
     Dates: start: 20180912, end: 20180912
  6. BENADRYL ALLERGY ULTRATAB [Suspect]
     Active Substance: DIPHENHYDRAMINE HYDROCHLORIDE
     Indication: SWELLING FACE
     Route: 048
     Dates: start: 20180912, end: 20180912
  7. BENADRYL ALLERGY ULTRATAB [Suspect]
     Active Substance: DIPHENHYDRAMINE HYDROCHLORIDE
     Indication: SKIN LESION
     Route: 048
     Dates: start: 20180912, end: 20180912
  8. BENADRYL ALLERGY ULTRATAB [Suspect]
     Active Substance: DIPHENHYDRAMINE HYDROCHLORIDE
     Indication: ERYTHEMA
     Route: 048
     Dates: start: 20180912, end: 20180912
  9. CLEAN AND CLEAR ADVANTAGE ACNE CONTROL 3-IN-1 FOAMING WASH 8OZ [Concomitant]
     Indication: ACNE
     Route: 061
     Dates: start: 20180911
  10. BENADRYL ALLERGY ULTRATAB [Suspect]
     Active Substance: DIPHENHYDRAMINE HYDROCHLORIDE
     Indication: HYPERSENSITIVITY
     Route: 048
     Dates: start: 20180912, end: 20180912
  11. IBUPROFEN. [Suspect]
     Active Substance: IBUPROFEN
     Indication: SKIN EXFOLIATION
     Route: 065
     Dates: start: 20180912, end: 20180912

REACTIONS (2)
  - Off label use [Unknown]
  - Product use in unapproved indication [Unknown]

NARRATIVE: CASE EVENT DATE: 20180912
